FAERS Safety Report 12978734 (Version 1)
Quarter: 2016Q4

REPORT INFORMATION
  Report Type: Spontaneous
  Country: US (occurrence: US)
  Receive Date: 20161128
  Receipt Date: 20161128
  Transmission Date: 20170207
  Serious: Yes (Other)
  Sender: FDA-Public Use
  Company Number: US-ELI_LILLY_AND_COMPANY-US201611005742

PATIENT
  Sex: Male

DRUGS (5)
  1. ETODOLAC. [Concomitant]
     Active Substance: ETODOLAC
     Dosage: UNK, UNKNOWN
     Route: 065
  2. LISINOPRIL. [Suspect]
     Active Substance: LISINOPRIL
     Indication: PRODUCT USED FOR UNKNOWN INDICATION
     Dosage: UNK, UNKNOWN
     Route: 065
     Dates: end: 201611
  3. EFFIENT [Suspect]
     Active Substance: PRASUGREL HYDROCHLORIDE
     Indication: MYOCARDIAL INFARCTION
     Dosage: 10 MG, QD
     Route: 065
     Dates: start: 201004
  4. ASPIRIN                            /00002701/ [Concomitant]
     Active Substance: ASPIRIN
     Dosage: UNK, UNKNOWN
     Route: 065
  5. EFFIENT [Suspect]
     Active Substance: PRASUGREL HYDROCHLORIDE
     Indication: STENT PLACEMENT

REACTIONS (7)
  - Haemorrhagic diathesis [Recovered/Resolved]
  - Face injury [Unknown]
  - Fall [Unknown]
  - Carotid artery occlusion [Unknown]
  - Haemorrhage [Recovered/Resolved]
  - Heart rate decreased [Unknown]
  - Contusion [Recovered/Resolved]

NARRATIVE: CASE EVENT DATE: 2013
